FAERS Safety Report 9288339 (Version 1)
Quarter: 2013Q2

REPORT INFORMATION
  Report Type: Spontaneous
  Country: IT (occurrence: None)
  Receive Date: 20130509
  Receipt Date: 20130509
  Transmission Date: 20140414
  Serious: Yes (Hospitalization)
  Sender: FDA-Public Use
  Company Number: AUR-APL-2013-03774

PATIENT
  Age: 67 Year
  Sex: Male

DRUGS (4)
  1. ATENOLOL (ATENOLOL) [Suspect]
     Indication: HYPERTENSION
     Route: 048
     Dates: start: 20120101, end: 20130228
  2. SOLOSA(GLIMEPIRIDE) [Concomitant]
  3. CRESTOR(ROSUVASTATIN) [Concomitant]
  4. METFORMIN HYDROCHLORIDE(METFORMIN HYDROCHLORIDE) [Concomitant]

REACTIONS (1)
  - Atrioventricular block complete [None]
